FAERS Safety Report 6618189-2 (Version None)
Quarter: 2010Q1

REPORT INFORMATION
  Report Type: 
  Country: None (occurrence: None)
  Receive Date: 20100308
  Receipt Date: 20100225
  Transmission Date: 20100710
  Serious: Yes (Death, Other)
  Sender: FDA-Public Use
  Company Number: US-BAXTER-2009BH019051

PATIENT
  Age: 75 Year
  Sex: Male

DRUGS (5)
  1. HEPARIN SODIUM INJECTION [Suspect]
     Indication: MYOCARDIAL INFARCTION
     Route: 042
     Dates: start: 20071112
  2. NITROGLYCERIN [Concomitant]
     Indication: DRUG USE FOR UNKNOWN INDICATION
     Route: 065
  3. ISOSORBIDE [Concomitant]
     Indication: DRUG USE FOR UNKNOWN INDICATION
     Route: 065
  4. ASPIRIN [Concomitant]
     Indication: DRUG USE FOR UNKNOWN INDICATION
     Route: 065
  5. SIMVASTATIN [Concomitant]
     Indication: DRUG USE FOR UNKNOWN INDICATION
     Route: 065

REACTIONS (6)
  - ARTERIOSCLEROSIS CORONARY ARTERY [None]
  - CARDIAC VALVE DISEASE [None]
  - CARDIO-RESPIRATORY ARREST [None]
  - DYSPNOEA [None]
  - HEPARIN-INDUCED THROMBOCYTOPENIA [None]
  - MYOCARDIAL ISCHAEMIA [None]
